FAERS Safety Report 8692559 (Version 2)
Quarter: 2012Q4

REPORT INFORMATION
  Report Type: 
  Country: US (occurrence: US)
  Receive Date: 20120730
  Receipt Date: 20120913
  Transmission Date: 20130627
  Serious: Yes (Other)
  Sender: FDA-Public Use
  Company Number: US-GLAXOSMITHKLINE-A0987199A

PATIENT
  Age: 31 Year
  Sex: Female

DRUGS (3)
  1. ADVAIR [Suspect]
     Indication: ASTHMA
     Dosage: 1PUFF Per day
     Route: 055
     Dates: start: 2006
  2. ALBUTEROL INHALER [Concomitant]
  3. ALBUTEROL NEBULIZER [Concomitant]

REACTIONS (2)
  - Choking [Recovering/Resolving]
  - Product quality issue [Unknown]
